FAERS Safety Report 10250592 (Version 2)
Quarter: 2014Q4

REPORT INFORMATION
  Report Type: Spontaneous
  Country: US (occurrence: US)
  Receive Date: 20140620
  Receipt Date: 20141110
  Transmission Date: 20150528
  Serious: Yes (Hospitalization, Other)
  Sender: FDA-Public Use
  Company Number: US-GLAXOSMITHKLINE-A1077760A

PATIENT
  Age: 49 Year
  Sex: Male

DRUGS (8)
  1. COREG CR [Suspect]
     Active Substance: CARVEDILOL PHOSPHATE
     Indication: PRODUCT USED FOR UNKNOWN INDICATION
     Dosage: 40 MG, UNKNOWN DAILY DOSE
     Route: 048
     Dates: start: 20120622
  2. ATACAND [Concomitant]
     Active Substance: CANDESARTAN CILEXETIL
  3. LEVOTHYROXINE [Concomitant]
     Active Substance: LEVOTHYROXINE
  4. XARELTO [Concomitant]
     Active Substance: RIVAROXABAN
  5. ASPIRIN. [Concomitant]
     Active Substance: ASPIRIN
  6. NOVOLOG [Concomitant]
     Active Substance: INSULIN ASPART
  7. NITROGLYCERIN. [Concomitant]
     Active Substance: NITROGLYCERIN
  8. TRICOR [Concomitant]
     Active Substance: FENOFIBRATE

REACTIONS (2)
  - Deep vein thrombosis [Unknown]
  - Coronary arterial stent insertion [Unknown]

NARRATIVE: CASE EVENT DATE: 201309
